FAERS Safety Report 5396035-5 (Version None)
Quarter: 2007Q3

REPORT INFORMATION
  Report Type: 
  Country: None (occurrence: None)
  Receive Date: 20070724
  Receipt Date: 20070712
  Transmission Date: 20080115
  Serious: Yes (Other)
  Sender: FDA-Public Use
  Company Number: BR-PFIZER INC-2007058527

PATIENT
  Age: 13 Year
  Sex: Female

DRUGS (1)
  1. EXUBERA [Suspect]
     Indication: TYPE 1 DIABETES MELLITUS
     Route: 055

REACTIONS (1)
  - CONFUSIONAL STATE [None]
